FAERS Safety Report 9704640 (Version 1)
Quarter: 2013Q4

REPORT INFORMATION
  Report Type: Spontaneous
  Country: FR (occurrence: FR)
  Receive Date: 20131122
  Receipt Date: 20131122
  Transmission Date: 20140711
  Serious: Yes (Life-Threatening)
  Sender: FDA-Public Use
  Company Number: FR-EISAI INC-E2090-02977-SPO-FR

PATIENT
  Age: 60 Year
  Sex: Male

DRUGS (7)
  1. ZONEGRAN [Suspect]
     Indication: EPILEPSY
     Route: 048
     Dates: start: 20121018, end: 20130105
  2. TEGRETOL [Suspect]
     Indication: EPILEPSY
     Route: 048
     Dates: start: 19820626, end: 2013
  3. TEGRETOL [Suspect]
     Route: 048
     Dates: start: 2013
  4. COKENZEN [Suspect]
     Indication: PRODUCT USED FOR UNKNOWN INDICATION
     Dosage: 1 TABLET DAILY
     Route: 048
     Dates: end: 20130105
  5. SERETIDE DISKUS [Suspect]
     Indication: PRODUCT USED FOR UNKNOWN INDICATION
     Dosage: SALMETEROL 50 UG/FLUTICASONE 500 UG
     Route: 055
  6. TAHOR [Concomitant]
  7. RHINOCORT [Concomitant]
     Route: 055

REACTIONS (2)
  - Hypokalaemia [Recovered/Resolved]
  - Acute coronary syndrome [Recovered/Resolved]
